FAERS Safety Report 25841042 (Version 1)
Quarter: 2025Q3

REPORT INFORMATION
  Report Type: Spontaneous
  Country: AU (occurrence: AU)
  Receive Date: 20250924
  Receipt Date: 20250924
  Transmission Date: 20251020
  Serious: Yes (Other)
  Sender: CIPLA
  Company Number: AU-CIPLA (EU) LIMITED-2025AU11847

PATIENT

DRUGS (12)
  1. LEVETIRACETAM [Suspect]
     Active Substance: LEVETIRACETAM
     Indication: Partial seizures
     Route: 065
  2. LEVETIRACETAM [Suspect]
     Active Substance: LEVETIRACETAM
     Indication: Tonic convulsion
  3. LACOSAMIDE [Suspect]
     Active Substance: LACOSAMIDE
     Indication: Tonic convulsion
     Route: 065
  4. LACOSAMIDE [Suspect]
     Active Substance: LACOSAMIDE
     Indication: Partial seizures
  5. OXCARBAZEPINE [Suspect]
     Active Substance: OXCARBAZEPINE
     Indication: Tonic convulsion
     Route: 065
  6. OXCARBAZEPINE [Suspect]
     Active Substance: OXCARBAZEPINE
     Indication: Partial seizures
  7. ZONISAMIDE [Suspect]
     Active Substance: ZONISAMIDE
     Indication: Tonic convulsion
     Route: 065
  8. ZONISAMIDE [Suspect]
     Active Substance: ZONISAMIDE
     Indication: Partial seizures
  9. PHENOBARBITAL [Concomitant]
     Active Substance: PHENOBARBITAL
     Indication: Tonic convulsion
     Route: 065
  10. PHENOBARBITAL [Concomitant]
     Active Substance: PHENOBARBITAL
     Indication: Partial seizures
  11. PHENYTOIN [Concomitant]
     Active Substance: PHENYTOIN
     Indication: Tonic convulsion
     Route: 065
  12. PHENYTOIN [Concomitant]
     Active Substance: PHENYTOIN
     Indication: Partial seizures

REACTIONS (1)
  - Drug ineffective [Unknown]
